FAERS Safety Report 4804173-8 (Version None)
Quarter: 2005Q4

REPORT INFORMATION
  Report Type: 
  Country: None (occurrence: None)
  Receive Date: 20051018
  Receipt Date: 20051018
  Transmission Date: 20060501
  Serious: Yes (Other)
  Sender: FDA-Public Use
  Company Number: None

PATIENT

DRUGS (3)
  1. BUPIVACAINE 0.75% W/ DEXTROSE [Suspect]
     Indication: EPIDURAL ANAESTHESIA
  2. BUPIVACAINE 0.75% W/ DEXTROSE [Suspect]
     Indication: SPINAL ANAESTHESIA
  3. BUPIVACAINE 0.75% W/ DEXTROSE [Suspect]

REACTIONS (2)
  - ANAESTHETIC COMPLICATION [None]
  - DRUG INEFFECTIVE [None]
